FAERS Safety Report 10070309 (Version 1)
Quarter: 2014Q2

REPORT INFORMATION
  Report Type: Spontaneous
  Country: GR (occurrence: GR)
  Receive Date: 20140410
  Receipt Date: 20140410
  Transmission Date: 20141212
  Serious: Yes (Other)
  Sender: FDA-Public Use
  Company Number: GR-BRISTOL-MYERS SQUIBB COMPANY-20604419

PATIENT
  Age: 59 Year
  Sex: Female

DRUGS (1)
  1. GLUCOPHAGE TABS [Suspect]
     Route: 048

REACTIONS (6)
  - Cerebrovascular accident [Recovered/Resolved with Sequelae]
  - Blood glucose increased [Unknown]
  - Constipation [Unknown]
  - Pain [Unknown]
  - Dizziness [Unknown]
  - Tremor [Unknown]
